FAERS Safety Report 5885005-6 (Version None)
Quarter: 2008Q3

REPORT INFORMATION
  Report Type: 
  Country: None (occurrence: None)
  Receive Date: 20080915
  Receipt Date: 20080915
  Transmission Date: 20090109
  Serious: Yes (Hospitalization)
  Sender: FDA-Public Use
  Company Number: None

PATIENT
  Sex: Male
  Weight: 123.8 kg

DRUGS (3)
  1. TAXOTERE [Suspect]
     Dosage: 191 MG
     Dates: end: 20080828
  2. LISINOPRIL [Concomitant]
  3. METOPROLOL SUCCINATE [Concomitant]

REACTIONS (5)
  - ASTHENIA [None]
  - DEHYDRATION [None]
  - HYPOPHAGIA [None]
  - NAUSEA [None]
  - UROSEPSIS [None]
